FAERS Safety Report 16398132 (Version 3)
Quarter: 2021Q1

REPORT INFORMATION
  Report Type: Report from Study
  Country: US (occurrence: US)
  Receive Date: 20190606
  Receipt Date: 20210331
  Transmission Date: 20210419
  Serious: Yes (Hospitalization, Other)
  Sender: FDA-Public Use
  Company Number: US-AMGEN-USASP2019088265

PATIENT
  Age: 86 Year
  Sex: Female

DRUGS (3)
  1. ENBREL [Suspect]
     Active Substance: ETANERCEPT
     Dosage: UNK
     Route: 065
  2. ENBREL [Suspect]
     Active Substance: ETANERCEPT
     Indication: RHEUMATOID ARTHRITIS
     Dosage: UNK
     Route: 065
  3. ENBREL [Suspect]
     Active Substance: ETANERCEPT
     Indication: ANKYLOSING SPONDYLITIS
     Dosage: UNK
     Route: 065
     Dates: end: 202010

REACTIONS (16)
  - Arthritis infective [Unknown]
  - Cellulitis [Unknown]
  - Cough [Not Recovered/Not Resolved]
  - Arthropathy [Unknown]
  - Asthenia [Unknown]
  - Lung neoplasm malignant [Recovered/Resolved]
  - Sinus headache [Not Recovered/Not Resolved]
  - Joint swelling [Unknown]
  - Meniscus injury [Unknown]
  - Retinal dystrophy [Not Recovered/Not Resolved]
  - Stenosis [Unknown]
  - Feeding disorder [Unknown]
  - Pain in extremity [Unknown]
  - Fall [Unknown]
  - Pain [Unknown]
  - Injection site pain [Unknown]

NARRATIVE: CASE EVENT DATE: 201905
